FAERS Safety Report 9638601 (Version 1)
Quarter: 2013Q4

REPORT INFORMATION
  Report Type: Spontaneous
  Country: US (occurrence: US)
  Receive Date: 20131022
  Receipt Date: 20131022
  Transmission Date: 20140711
  Serious: No
  Sender: FDA-Public Use
  Company Number: US-BRISTOL-MYERS SQUIBB COMPANY-19461938

PATIENT
  Sex: 0

DRUGS (1)
  1. APIXABAN [Suspect]
     Indication: EMBOLISM VENOUS

REACTIONS (1)
  - Off label use [Unknown]
